FAERS Safety Report 14556745 (Version 1)
Quarter: 2018Q1

REPORT INFORMATION
  Report Type: Spontaneous
  Country: US (occurrence: US)
  Receive Date: 20180221
  Receipt Date: 20180221
  Transmission Date: 20180509
  Serious: No
  Sender: FDA-Public Use
  Company Number: US-PFIZER INC-2018074625

PATIENT
  Age: 64 Year
  Sex: Male
  Weight: 86.18 kg

DRUGS (10)
  1. GABAPENTIN. [Suspect]
     Active Substance: GABAPENTIN
     Indication: NEUROPATHY PERIPHERAL
     Dosage: 300 MG, 3X/DAY
     Route: 048
     Dates: start: 2017
  2. MONTELUKAST [Concomitant]
     Active Substance: MONTELUKAST SODIUM
  3. ISOSORBIDE. [Concomitant]
     Active Substance: ISOSORBIDE
  4. PLAVIX [Concomitant]
     Active Substance: CLOPIDOGREL BISULFATE
  5. SPIRIVA [Concomitant]
     Active Substance: TIOTROPIUM BROMIDE MONOHYDRATE
  6. SIMBICORT [Concomitant]
     Active Substance: BUDESONIDE\FORMOTEROL FUMARATE
  7. TOPROL XL [Concomitant]
     Active Substance: METOPROLOL SUCCINATE
     Dosage: 25 MG, 2X/DAY
  8. LISINOPRIL. [Concomitant]
     Active Substance: LISINOPRIL
  9. ASPIRIN. [Concomitant]
     Active Substance: ASPIRIN
  10. SIMVASTATIN. [Concomitant]
     Active Substance: SIMVASTATIN

REACTIONS (1)
  - Drug ineffective for unapproved indication [Not Recovered/Not Resolved]

NARRATIVE: CASE EVENT DATE: 2017
